FAERS Safety Report 10308644 (Version 2)
Quarter: 2014Q3

REPORT INFORMATION
  Report Type: Spontaneous
  Country: GB (occurrence: GB)
  Receive Date: 20140716
  Receipt Date: 20140721
  Transmission Date: 20150326
  Serious: Yes (Other)
  Sender: FDA-Public Use
  Company Number: PHHY2014GB083966

PATIENT
  Age: 18 Year
  Sex: Male

DRUGS (5)
  1. MIRTAZAPINE. [Suspect]
     Active Substance: MIRTAZAPINE
     Indication: EATING DISORDER
     Dosage: 15 MG, DAILY
     Route: 065
  2. PROPRANOLOL [Concomitant]
     Active Substance: PROPRANOLOL\PROPRANOLOL HYDROCHLORIDE
     Indication: PRODUCT USED FOR UNKNOWN INDICATION
     Dosage: 80 MG, DAILY
     Route: 065
  3. MIRTAZAPINE. [Suspect]
     Active Substance: MIRTAZAPINE
     Indication: DECREASED INTEREST
     Dosage: 30 MG, DAILY
     Route: 065
     Dates: start: 20140618
  4. FLUCLOXACILLIN [Concomitant]
     Active Substance: FLUCLOXACILLIN
     Indication: PRODUCT USED FOR UNKNOWN INDICATION
     Route: 065
  5. MIRTAZAPINE. [Suspect]
     Active Substance: MIRTAZAPINE
     Indication: DEPRESSION
     Dosage: 15 MG, DAILY
     Route: 065

REACTIONS (11)
  - Increased appetite [Unknown]
  - Hallucination, visual [Unknown]
  - Abnormal dreams [Unknown]
  - Mood swings [Unknown]
  - Weight increased [Unknown]
  - Aggression [Unknown]
  - Condition aggravated [Unknown]
  - Insomnia [Unknown]
  - Convulsion [Unknown]
  - Obsessive-compulsive disorder [Unknown]
  - Hypersomnia [Unknown]
